FAERS Safety Report 13256565 (Version 1)
Quarter: 2017Q1

REPORT INFORMATION
  Report Type: Spontaneous
  Country: NO (occurrence: NO)
  Receive Date: 20170221
  Receipt Date: 20170221
  Transmission Date: 20170428
  Serious: Yes (Other)
  Sender: FDA-Public Use
  Company Number: NO-TEVA-741310ACC

PATIENT
  Age: 56 Year
  Sex: Female

DRUGS (3)
  1. METHOTREXATE. [Suspect]
     Active Substance: METHOTREXATE
     Indication: SJOGREN^S SYNDROME
  2. METHOTREXATE. [Suspect]
     Active Substance: METHOTREXATE
     Indication: RHEUMATOID ARTHRITIS
     Dosage: UNK
     Dates: start: 2014, end: 2014
  3. METHOTREXATE. [Suspect]
     Active Substance: METHOTREXATE
     Indication: PSORIASIS

REACTIONS (13)
  - Rheumatoid arthritis [Unknown]
  - Mouth ulceration [Unknown]
  - Mucosal ulceration [Unknown]
  - Rash [Unknown]
  - Alopecia [Unknown]
  - Psoriasis [Unknown]
  - Skin atrophy [Unknown]
  - Photophobia [Unknown]
  - Genital ulceration [Unknown]
  - Condition aggravated [Unknown]
  - Mucous membrane disorder [Unknown]
  - Tooth disorder [Unknown]
  - Wound [Unknown]

NARRATIVE: CASE EVENT DATE: 2014
